FAERS Safety Report 6573434-7 (Version None)
Quarter: 2010Q1

REPORT INFORMATION
  Report Type: 
  Country: None (occurrence: None)
  Receive Date: 20100208
  Receipt Date: 20100128
  Transmission Date: 20100710
  Serious: Yes (Other)
  Sender: FDA-Public Use
  Company Number: FR-SANOFI-AVENTIS-2010SA005648

PATIENT
  Age: 83 Year
  Sex: Female

DRUGS (2)
  1. LASILIX [Suspect]
     Indication: DRUG USE FOR UNKNOWN INDICATION
     Route: 065
     Dates: start: 20050101, end: 20090101
  2. LASILIX [Suspect]
     Route: 065
     Dates: start: 20090101

REACTIONS (2)
  - HALLUCINATION, AUDITORY [None]
  - TINNITUS [None]
